FAERS Safety Report 19174865 (Version 1)
Quarter: 2021Q2

REPORT INFORMATION
  Report Type: Spontaneous
  Country: JP (occurrence: JP)
  Receive Date: 20210423
  Receipt Date: 20210423
  Transmission Date: 20210717
  Serious: Yes (Other)
  Sender: FDA-Public Use
  Company Number: JP-BAYER-2021-015334

PATIENT
  Age: 86 Year
  Sex: Male
  Weight: 48.6 kg

DRUGS (9)
  1. CRESTOR [Concomitant]
     Active Substance: ROSUVASTATIN CALCIUM
     Dosage: DAILY DOSE 1 DF
     Route: 048
  2. MICARDIS [Concomitant]
     Active Substance: TELMISARTAN
     Dosage: DAILY DOSE 1 DF
     Route: 048
  3. SIGMART [Concomitant]
     Active Substance: NICORANDIL
     Dosage: DAILY DOSE 3 DF
     Route: 048
  4. EPADEL [EICOSAPENTAENOIC ACID] [Concomitant]
     Active Substance: ICOSAPENT
     Dosage: DAILY DOSE 3 DF
     Route: 048
  5. STIVARGA [Suspect]
     Active Substance: REGORAFENIB
     Indication: GASTROINTESTINAL STROMAL TUMOUR
     Dosage: 3 WEEKS ON, 1 WEEK OFF
     Route: 048
     Dates: start: 20201216, end: 20201230
  6. TAKECAB [Concomitant]
     Active Substance: VONOPRAZAN FUMARATE
     Dosage: DAILY DOSE 1 DF
     Route: 048
  7. CALONAL [Concomitant]
     Active Substance: ACETAMINOPHEN
     Dosage: DAILY DOSE 3 DF
     Route: 048
  8. MAGMITT [Concomitant]
     Active Substance: MAGNESIUM OXIDE
     Dosage: DAILY DOSE 3 DF
     Route: 048
  9. OXYCONTIN TR [Concomitant]
     Active Substance: OXYCODONE HYDROCHLORIDE
     Dosage: DAILY DOSE 4 DF
     Route: 048

REACTIONS (12)
  - Cardiac failure [None]
  - Aggression [Recovered/Resolved]
  - Palmar-plantar erythrodysaesthesia syndrome [None]
  - Pain in extremity [None]
  - Dyspnoea [None]
  - Loss of personal independence in daily activities [None]
  - Abnormal behaviour [Recovered/Resolved]
  - Agitation [Recovered/Resolved]
  - Disorientation [Recovered/Resolved]
  - Pleural effusion [None]
  - Oedema peripheral [None]
  - Therapy cessation [None]

NARRATIVE: CASE EVENT DATE: 20201223
